FAERS Safety Report 10785898 (Version 6)
Quarter: 2018Q3

REPORT INFORMATION
  Report Type: Report from Study
  Country: FR (occurrence: FR)
  Receive Date: 20150211
  Receipt Date: 20180911
  Transmission Date: 20181010
  Serious: Yes (Death, Hospitalization)
  Sender: FDA-Public Use
  Company Number: FR-009507513-1502FRA003277

PATIENT
  Age: 70 Year
  Sex: Male
  Weight: 66 kg

DRUGS (6)
  1. PANTESTONE [Concomitant]
     Active Substance: TESTOSTERONE
     Indication: HYPOGONADISM
     Dosage: 480 MG, QD
     Dates: start: 201410
  2. LEVOTHYROX [Concomitant]
     Active Substance: LEVOTHYROXINE
  3. HYDROCORTISONE. [Concomitant]
     Active Substance: HYDROCORTISONE
     Indication: BLOOD CORTICOTROPHIN DECREASED
     Dosage: 15 MG, QD
     Route: 048
     Dates: start: 201410
  4. DOLIPRANE [Concomitant]
     Active Substance: ACETAMINOPHEN
  5. BETNEVAL [Concomitant]
     Active Substance: BETAMETHASONE VALERATE
  6. PEMBROLIZUMAB. [Suspect]
     Active Substance: PEMBROLIZUMAB
     Indication: METASTATIC MALIGNANT MELANOMA
     Dosage: 2 MG/KG, Q3W
     Route: 042
     Dates: start: 20141208, end: 20141229

REACTIONS (4)
  - Hepatitis [Recovering/Resolving]
  - Pancreatitis acute [Recovering/Resolving]
  - Malignant neoplasm progression [Fatal]
  - Cholangitis [Recovering/Resolving]

NARRATIVE: CASE EVENT DATE: 20150116
